FAERS Safety Report 9242355 (Version 1)
Quarter: 2013Q2

REPORT INFORMATION
  Report Type: Spontaneous
  Country: FR (occurrence: FR)
  Receive Date: 20130419
  Receipt Date: 20130419
  Transmission Date: 20140414
  Serious: Yes (Other)
  Sender: FDA-Public Use
  Company Number: FR-JNJFOC-20130406853

PATIENT
  Age: 30 Year
  Sex: Female

DRUGS (3)
  1. XEPLION [Suspect]
     Indication: PRODUCT USED FOR UNKNOWN INDICATION
     Route: 030
     Dates: start: 20130404
  2. XEPLION [Suspect]
     Indication: PRODUCT USED FOR UNKNOWN INDICATION
     Route: 030
     Dates: start: 20130305, end: 20130305
  3. SERESTA [Concomitant]
     Route: 065

REACTIONS (5)
  - Aggression [Unknown]
  - Disinhibition [Unknown]
  - Hypomania [Unknown]
  - Disturbance in social behaviour [Unknown]
  - Abnormal behaviour [Unknown]
